FAERS Safety Report 12256863 (Version 1)
Quarter: 2016Q2

REPORT INFORMATION
  Report Type: Report from Study
  Country: DE (occurrence: DE)
  Receive Date: 20160412
  Receipt Date: 20160412
  Transmission Date: 20160815
  Serious: Yes (Hospitalization)
  Sender: FDA-Public Use
  Company Number: DE-GLAXOSMITHKLINE-DE2016047494

PATIENT
  Age: 53 Year
  Sex: Male
  Weight: 56 kg

DRUGS (3)
  1. PANTOZOL [Concomitant]
     Active Substance: PANTOPRAZOLE SODIUM
     Indication: GASTROINTESTINAL INFLAMMATION
     Dosage: 40 MG, 1D
     Route: 048
     Dates: start: 20160319
  2. SAB SIMPLEX [Concomitant]
     Indication: GASTROINTESTINAL INFLAMMATION
     Dosage: 80 MG, TID
     Route: 048
     Dates: start: 20160319
  3. FLUTICASONE FUROATE + VILANTEROL TRIFENATATE [Suspect]
     Active Substance: FLUTICASONE FUROATE\VILANTEROL TRIFENATATE
     Indication: CHRONIC OBSTRUCTIVE PULMONARY DISEASE
     Dosage: UNK
     Dates: start: 20150921

REACTIONS (1)
  - Gastrointestinal inflammation [Recovered/Resolved]

NARRATIVE: CASE EVENT DATE: 20160319
